FAERS Safety Report 7953739-5 (Version None)
Quarter: 2011Q4

REPORT INFORMATION
  Report Type: 
  Country: None (occurrence: None)
  Receive Date: 20111129
  Receipt Date: 20111116
  Transmission Date: 20120403
  Serious: Yes (Death, Hospitalization, Other)
  Sender: FDA-Public Use
  Company Number: CLOF-10500

PATIENT
  Age: 76 Year
  Sex: Male

DRUGS (19)
  1. ITRACONAZOLE [Concomitant]
  2. POTASSIUM CHLORIDE [Concomitant]
  3. MAGNESIUM OXIDE (MAGNESIUM OXIDE) [Concomitant]
  4. PREVACID [Concomitant]
  5. FLOMAX [Concomitant]
  6. PROSCAR [Concomitant]
  7. SENNA-MINT WAF [Concomitant]
  8. GLIPIZIDE SR [Concomitant]
  9. HYDROCORTONE [Concomitant]
  10. LINEZOLID [Concomitant]
  11. CYTARABINE [Suspect]
     Indication: ACUTE MYELOID LEUKAEMIA
     Dosage: 1000 MG/M2, QDX5, INTRAVENOUS
     Route: 042
     Dates: start: 20070129, end: 20070202
  12. PREDNISONE TAB [Concomitant]
  13. SPORANOX [Concomitant]
  14. TOPROL-XL [Concomitant]
  15. CLOFARABINE OR PLACEBO (CLOFARABINE) SOLUTION FOR INFUSION [Suspect]
     Indication: ACUTE MYELOID LEUKAEMIA
     Dosage: 40 MG/M2, QDX5, INTRAVENOUS
     Route: 042
     Dates: start: 20070129, end: 20070202
  16. DIFLUCAN [Concomitant]
  17. COLACE (DOCUSATE SODIUM) [Concomitant]
  18. ZYVOX [Concomitant]
  19. ROXICODONE [Concomitant]

REACTIONS (34)
  - PSEUDOMONAS TEST POSITIVE [None]
  - PERIPHERAL SENSORIMOTOR NEUROPATHY [None]
  - FALL [None]
  - HAEMATEMESIS [None]
  - LOBAR PNEUMONIA [None]
  - SPLENIC INFARCTION [None]
  - URINARY TRACT INFECTION ENTEROCOCCAL [None]
  - PURPURA [None]
  - DYSPHAGIA [None]
  - ATELECTASIS [None]
  - BONE MARROW FAILURE [None]
  - ORTHOSTATIC INTOLERANCE [None]
  - SQUAMOUS CELL CARCINOMA OF SKIN [None]
  - FAECAL INCONTINENCE [None]
  - PLEURAL EFFUSION [None]
  - PRESYNCOPE [None]
  - STAPHYLOCOCCUS TEST POSITIVE [None]
  - PULMONARY OEDEMA [None]
  - SKIN EXFOLIATION [None]
  - DIARRHOEA [None]
  - ACTINIC KERATOSIS [None]
  - HERPES DERMATITIS [None]
  - PARANASAL CYST [None]
  - MUSCULAR WEAKNESS [None]
  - URINARY INCONTINENCE [None]
  - FUNGAL INFECTION [None]
  - RASH [None]
  - BLOOD ALKALINE PHOSPHATASE INCREASED [None]
  - SINUS POLYP [None]
  - ENTEROCOCCAL BACTERAEMIA [None]
  - CLOSTRIDIUM DIFFICILE COLITIS [None]
  - KERATITIS HERPETIC [None]
  - HYPOTENSION [None]
  - TOXICITY TO VARIOUS AGENTS [None]
